FAERS Safety Report 13739650 (Version 5)
Quarter: 2017Q4

REPORT INFORMATION
  Report Type: Spontaneous
  Country: US (occurrence: US)
  Receive Date: 20170710
  Receipt Date: 20171017
  Transmission Date: 20180320
  Serious: Yes (Other)
  Sender: FDA-Public Use
  Company Number: US-009507513-1706USA007839

PATIENT
  Age: 33 Year
  Sex: Female
  Weight: 54.42 kg

DRUGS (6)
  1. FOLLISTIM [Concomitant]
     Active Substance: FOLLITROPIN
     Indication: OVULATION INDUCTION
     Dosage: 150 (UNITS NOT PROVIDED), QD
     Route: 058
     Dates: start: 20170602, end: 20170610
  2. FOLLISTIM [Concomitant]
     Active Substance: FOLLITROPIN
     Indication: IN VITRO FERTILISATION
  3. GANIRELIX ACETATE INJECTION [Suspect]
     Active Substance: GANIRELIX ACETATE
     Indication: PREVENTION OF PREMATURE OVULATION
  4. GANIRELIX ACETATE INJECTION [Suspect]
     Active Substance: GANIRELIX ACETATE
     Indication: ASSISTED FERTILISATION
     Dosage: 250 MICROGRAM, QD
     Route: 058
     Dates: start: 20170606, end: 20170611
  5. MENOPUR [Concomitant]
     Active Substance: FOLLITROPIN\LUTEINIZING HORMONE
     Indication: IN VITRO FERTILISATION
  6. MENOPUR [Concomitant]
     Active Substance: FOLLITROPIN\LUTEINIZING HORMONE
     Indication: OVULATION INDUCTION
     Dosage: 37.5 - 75 IU, AS DIRECTED
     Route: 058
     Dates: start: 20170602, end: 20170610

REACTIONS (2)
  - Drug ineffective [Recovered/Resolved]
  - Anovulatory cycle [Recovered/Resolved]

NARRATIVE: CASE EVENT DATE: 20170613
